FAERS Safety Report 7165595-6 (Version None)
Quarter: 2010Q4

REPORT INFORMATION
  Report Type: 
  Country: None (occurrence: None)
  Receive Date: 20101215
  Receipt Date: 20100201
  Transmission Date: 20110411
  Serious: No
  Sender: FDA-Public Use
  Company Number: US-AMGEN-TCS383647

PATIENT

DRUGS (5)
  1. ENBREL [Suspect]
     Indication: RHEUMATOID ARTHRITIS
     Dosage: 50 MG, QWK
     Route: 058
     Dates: start: 20090801, end: 20091214
  2. METHOTREXATE [Concomitant]
     Dosage: 25 MG, QWK
     Dates: start: 20030904
  3. ZOLPIDEM TARTRATE [Concomitant]
     Dosage: UNK UNK, UNK
     Dates: start: 20070105
  4. OMEPRAZOLE [Concomitant]
     Dosage: UNK UNK, UNK
     Dates: start: 20080102
  5. TRAMADOL HYDROCHLORIDE [Concomitant]
     Dosage: UNK UNK, UNK
     Dates: start: 20091216

REACTIONS (2)
  - RHEUMATOID ARTHRITIS [None]
  - THERAPEUTIC RESPONSE DECREASED [None]
